FAERS Safety Report 25441347 (Version 1)
Quarter: 2025Q2

REPORT INFORMATION
  Report Type: Spontaneous
  Country: JP (occurrence: JP)
  Receive Date: 20250616
  Receipt Date: 20250616
  Transmission Date: 20250717
  Serious: Yes (Other)
  Sender: ELI LILLY AND COMPANY
  Company Number: JP-ELI_LILLY_AND_COMPANY-JP202506007485

PATIENT
  Age: 24 Year
  Sex: Male

DRUGS (5)
  1. OMVOH [Suspect]
     Active Substance: MIRIKIZUMAB-MRKZ
     Indication: Colitis ulcerative
     Route: 041
  2. MERCAPTOPURINE [Concomitant]
     Active Substance: MERCAPTOPURINE
  3. ALLOPURINOL [Concomitant]
     Active Substance: ALLOPURINOL
  4. PREDNISOLONE [Concomitant]
     Active Substance: PREDNISOLONE
  5. BUDESONIDE [Concomitant]
     Active Substance: BUDESONIDE

REACTIONS (3)
  - Appendicitis [Unknown]
  - Anal abscess [Unknown]
  - C-reactive protein increased [Unknown]
